FAERS Safety Report 6129980-3 (Version None)
Quarter: 2009Q1

REPORT INFORMATION
  Report Type: 
  Country: None (occurrence: None)
  Receive Date: 20090324
  Receipt Date: 20090316
  Transmission Date: 20090719
  Serious: Yes (Other)
  Sender: FDA-Public Use
  Company Number: JP-MERCK-0903USA03711

PATIENT
  Age: 39 Year
  Sex: Female

DRUGS (2)
  1. PEPCID RPD [Suspect]
     Route: 048
     Dates: start: 20070901, end: 20071001
  2. CROMOLYN SODIUM [Suspect]
     Dates: start: 20070901, end: 20071001

REACTIONS (1)
  - DRUG ERUPTION [None]
